FAERS Safety Report 25840749 (Version 2)
Quarter: 2025Q4

REPORT INFORMATION
  Report Type: Spontaneous
  Country: EG (occurrence: EG)
  Receive Date: 20250924
  Receipt Date: 20251001
  Transmission Date: 20260117
  Serious: Yes (Hospitalization, Other)
  Sender: NOVO NORDISK
  Company Number: EG-NOVOPROD-1523070

PATIENT
  Sex: Male
  Weight: 65 kg

DRUGS (2)
  1. NOVORAPID [Suspect]
     Active Substance: INSULIN ASPART
     Indication: Type 1 diabetes mellitus
     Dosage: 20 IU, TID(20U, 20U, AND 20U DURING THE DAY)
     Route: 058
  2. TRESIBA [Suspect]
     Active Substance: INSULIN DEGLUDEC
     Indication: Type 1 diabetes mellitus
     Dosage: 25 IU, QD
     Route: 058

REACTIONS (5)
  - Arthralgia [Recovered/Resolved]
  - Pelvic infection [Unknown]
  - Kidney infection [Unknown]
  - Hyperglycaemia [Recovered/Resolved]
  - Bone pain [Unknown]
